FAERS Safety Report 7137131-1 (Version None)
Quarter: 2010Q4

REPORT INFORMATION
  Report Type: 
  Country: None (occurrence: None)
  Receive Date: 20101206
  Receipt Date: 20070423
  Transmission Date: 20110411
  Serious: Yes (Death)
  Sender: FDA-Public Use
  Company Number: US-ACTELION-A-US2007-15568

PATIENT

DRUGS (6)
  1. ILOPROST INHALATION SOLUTION 5UG US [Suspect]
     Indication: PULMONARY ARTERIAL HYPERTENSION
     Dosage: 5 UG, 4-6 X DAY
     Route: 055
     Dates: start: 20051103, end: 20070423
  2. LACTULOSE [Concomitant]
  3. PROPRANOLOL [Concomitant]
  4. PROTONIX [Concomitant]
  5. FUROSEMIDE [Concomitant]
  6. PENICILLIN [Concomitant]

REACTIONS (4)
  - DEATH [None]
  - INSOMNIA [None]
  - MALAISE [None]
  - TOOTH ABSCESS [None]
